FAERS Safety Report 4393340-6 (Version None)
Quarter: 2004Q3

REPORT INFORMATION
  Report Type: 
  Country: None (occurrence: None)
  Receive Date: 20040709
  Receipt Date: 20040628
  Transmission Date: 20050211
  Serious: Yes (Death)
  Sender: FDA-Public Use
  Company Number: NO-BRISTOL-MYERS SQUIBB COMPANY-12627568

PATIENT
  Age: 78 Year
  Sex: Male

DRUGS (2)
  1. VIDEX [Suspect]
  2. VIREAD [Interacting]

REACTIONS (4)
  - CORONARY ARTERY DISEASE [None]
  - DRUG INTERACTION [None]
  - PANCREATITIS [None]
  - RENAL FAILURE [None]
